FAERS Safety Report 19143219 (Version 3)
Quarter: 2021Q4

REPORT INFORMATION
  Report Type: Report from Study
  Country: JP (occurrence: JP)
  Receive Date: 20210416
  Receipt Date: 20211025
  Transmission Date: 20220303
  Serious: Yes (Hospitalization, Other)
  Sender: FDA-Public Use
  Company Number: JP-SA-2021SA123555

PATIENT
  Age: 36 Year
  Sex: Female
  Weight: 36 kg

DRUGS (6)
  1. DUPILUMAB [Suspect]
     Active Substance: DUPILUMAB
     Indication: Chronic rhinosinusitis with nasal polyps
     Dosage: 300 MG, QOW
     Route: 058
     Dates: start: 20200525, end: 20210329
  2. HERBALS [Suspect]
     Active Substance: HERBALS
     Indication: Chronic gastritis
     Dosage: 2.5 G, TID
     Route: 048
     Dates: start: 20210315, end: 20210327
  3. FLUTICASONE FUROATE\VILANTEROL TRIFENATATE [Concomitant]
     Active Substance: FLUTICASONE FUROATE\VILANTEROL TRIFENATATE
     Indication: Asthma
     Dosage: 1 INHALATION, QD
     Route: 055
     Dates: start: 20141002
  4. MONTELUKAST [Concomitant]
     Active Substance: MONTELUKAST SODIUM
     Indication: Asthma
     Dosage: 10 MG, QD
     Route: 048
     Dates: start: 20050927
  5. FEXOFENADINE HYDROCHLORIDE [Concomitant]
     Active Substance: FEXOFENADINE HYDROCHLORIDE
     Indication: Rhinitis allergic
     Dosage: 60 MG, BID
     Route: 048
     Dates: start: 20120726
  6. HERBALS [Concomitant]
     Active Substance: HERBALS
     Indication: Chronic gastritis
     Dosage: 2.5 G, TID
     Route: 048
     Dates: start: 20210301, end: 20210314

REACTIONS (7)
  - Eosinophilic pneumonia [Recovering/Resolving]
  - Dyspnoea exertional [Recovering/Resolving]
  - Painful respiration [Recovering/Resolving]
  - Pyrexia [Recovering/Resolving]
  - Chills [Recovering/Resolving]
  - Cough [Recovering/Resolving]
  - Eosinophil count increased [Recovering/Resolving]

NARRATIVE: CASE EVENT DATE: 20210301
